APPROVED DRUG PRODUCT: BUTALBITAL, ACETAMINOPHEN AND CAFFEINE
Active Ingredient: ACETAMINOPHEN; BUTALBITAL; CAFFEINE
Strength: 300MG;50MG;40MG
Dosage Form/Route: CAPSULE;ORAL
Application: A040885 | Product #001 | TE Code: AA
Applicant: LGM PHARMA SOLUTIONS LLC
Approved: Nov 16, 2009 | RLD: No | RS: Yes | Type: RX